FAERS Safety Report 8996725 (Version 1)
Quarter: 2012Q4

REPORT INFORMATION
  Report Type: Spontaneous
  Country: US (occurrence: None)
  Receive Date: 20121228
  Receipt Date: 20121228
  Transmission Date: 20130627
  Serious: Yes (Death)
  Sender: FDA-Public Use
  Company Number: None

PATIENT
  Age: 63 Year
  Sex: Male
  Weight: 97.07 kg

DRUGS (1)
  1. ATORVASTATIN CALCIUM [Suspect]
     Indication: CHOLESTEROL
     Dosage: 40 1 x day 1 x day
     Dates: start: 20111027, end: 20120512

REACTIONS (3)
  - Product contamination physical [None]
  - Product quality issue [None]
  - General physical health deterioration [None]
